FAERS Safety Report 10470745 (Version 2)
Quarter: 2014Q4

REPORT INFORMATION
  Report Type: Spontaneous
  Country: US (occurrence: None)
  Receive Date: 20140917
  Receipt Date: 20141217
  Transmission Date: 20150528
  Serious: No
  Sender: FDA-Public Use
  Company Number: 2014CT000082

PATIENT
  Age: 61 Year
  Sex: Male
  Weight: 100.7 kg

DRUGS (12)
  1. METOPROLOL [Concomitant]
     Active Substance: METOPROLOL
  2. FISH OIL [Concomitant]
     Active Substance: FISH OIL
  3. FERROUS GLUCONATE [Concomitant]
     Active Substance: FERROUS GLUCONATE
  4. BACLOFEN. [Concomitant]
     Active Substance: BACLOFEN
  5. INSULIN GLARGINE [Concomitant]
     Active Substance: INSULIN GLARGINE
  6. KORLYM [Suspect]
     Active Substance: MIFEPRISTONE
     Indication: CUSHING^S SYNDROME
     Dates: start: 20140509
  7. RANITIDINE [Concomitant]
     Active Substance: RANITIDINE\RANITIDINE HYDROCHLORIDE
  8. NITROGLYCERIN. [Concomitant]
     Active Substance: NITROGLYCERIN
  9. NOVOLIN [Concomitant]
     Active Substance: INSULIN HUMAN
  10. ISOSORBIDE NITRATE [Concomitant]
  11. FLUOXETINE [Concomitant]
     Active Substance: FLUOXETINE\FLUOXETINE HYDROCHLORIDE
  12. JANUVIA [Concomitant]
     Active Substance: SITAGLIPTIN PHOSPHATE

REACTIONS (5)
  - Vision blurred [None]
  - Blood pressure increased [None]
  - Blood glucose decreased [None]
  - Hyperhidrosis [None]
  - Glycosylated haemoglobin decreased [None]

NARRATIVE: CASE EVENT DATE: 201406
